FAERS Safety Report 21860920 (Version 2)
Quarter: 2023Q1

REPORT INFORMATION
  Report Type: Spontaneous
  Country: FR (occurrence: FR)
  Receive Date: 20230113
  Receipt Date: 20230214
  Transmission Date: 20230418
  Serious: Yes (Other)
  Sender: FDA-Public Use
  Company Number: FR-JNJFOC-20230115539

PATIENT
  Age: 48 Year
  Sex: Male

DRUGS (3)
  1. TREMFYA [Suspect]
     Active Substance: GUSELKUMAB
     Indication: Product used for unknown indication
     Route: 065
     Dates: start: 202107, end: 202110
  2. TREMFYA [Suspect]
     Active Substance: GUSELKUMAB
     Route: 065
     Dates: start: 202202
  3. TREMFYA [Suspect]
     Active Substance: GUSELKUMAB

REACTIONS (2)
  - Cerebrovascular accident [Unknown]
  - Drug ineffective [Unknown]
